FAERS Safety Report 25487913 (Version 1)
Quarter: 2025Q2

REPORT INFORMATION
  Report Type: Spontaneous
  Country: NL (occurrence: NL)
  Receive Date: 20250627
  Receipt Date: 20250627
  Transmission Date: 20250716
  Serious: Yes (Life-Threatening)
  Sender: TEVA
  Company Number: None

PATIENT
  Age: 50 Year
  Sex: Female
  Weight: 90 kg

DRUGS (3)
  1. VENLAFAXINE [Suspect]
     Active Substance: VENLAFAXINE HYDROCHLORIDE
     Indication: Burnout syndrome
     Dosage: 1X 1X PER DAY;  MGA / BRAND NAME NOT SPECIFIED
     Route: 048
     Dates: start: 20140601
  2. VENLAFAXINE [Suspect]
     Active Substance: VENLAFAXINE HYDROCHLORIDE
     Indication: Burnout syndrome
     Dosage: BACK TO 75 MG; MGA / BRAND NAME NOT SPECIFIED
     Route: 048
  3. VENLAFAXINE [Suspect]
     Active Substance: VENLAFAXINE HYDROCHLORIDE
     Indication: Burnout syndrome
     Dosage: 1X PER DAY 37.5, MGA / BRAND NAME NOT SPECIFIED
     Route: 048

REACTIONS (2)
  - Restlessness [Recovering/Resolving]
  - Suicide attempt [Recovering/Resolving]
